FAERS Safety Report 7058246-2 (Version None)
Quarter: 2010Q4

REPORT INFORMATION
  Report Type: 
  Country: None (occurrence: None)
  Receive Date: 20101022
  Receipt Date: 20101018
  Transmission Date: 20110411
  Serious: No
  Sender: FDA-Public Use
  Company Number: US-PFIZER INC-2010132329

PATIENT
  Sex: Male
  Weight: 181.4 kg

DRUGS (14)
  1. COLESTID [Suspect]
     Indication: BLOOD CHOLESTEROL ABNORMAL
     Dosage: 1 G, 2X/DAY
     Route: 048
     Dates: start: 20100101
  2. COLESTID [Suspect]
     Dosage: 4 G, 2X/DAY
  3. ALBUTEROL SULFATE [Concomitant]
     Indication: CHRONIC OBSTRUCTIVE PULMONARY DISEASE
     Dosage: UNK
     Route: 055
  4. SPIRIVA [Concomitant]
     Indication: CHRONIC OBSTRUCTIVE PULMONARY DISEASE
     Dosage: UNK
     Route: 055
  5. ADVAIR DISKUS 100/50 [Concomitant]
     Indication: CHRONIC OBSTRUCTIVE PULMONARY DISEASE
     Dosage: 230/21, UG, UNK
     Route: 055
  6. INSULIN [Concomitant]
     Indication: DIABETES MELLITUS
     Dosage: UNK
  7. METFORMIN [Concomitant]
     Indication: DIABETES MELLITUS
     Dosage: 850 MG, 1X/DAY
  8. LUMIGAN [Concomitant]
     Indication: GLAUCOMA
     Dosage: UNK
  9. DOXAZOSIN MESILATE [Concomitant]
     Indication: CARDIAC DISORDER
     Dosage: 4 MG, UNK
  10. KLOR-CON [Concomitant]
     Indication: CARDIAC DISORDER
     Dosage: 10 MG, 2X/DAY
  11. BUMETANIDE [Concomitant]
     Indication: CARDIAC DISORDER
     Dosage: 1 MG, DAILY
  12. LISINOPRIL [Concomitant]
     Indication: BLOOD PRESSURE
     Dosage: 20 MG, DAILY
  13. LISINOPRIL [Concomitant]
     Indication: CARDIAC DISORDER
  14. DESOXYN [Concomitant]
     Indication: NEPHROLITHIASIS
     Dosage: UNK

REACTIONS (2)
  - DECREASED APPETITE [None]
  - WEIGHT DECREASED [None]
